FAERS Safety Report 20877355 (Version 1)
Quarter: 2022Q2

REPORT INFORMATION
  Report Type: Spontaneous
  Country: AU (occurrence: AU)
  Receive Date: 20220526
  Receipt Date: 20220526
  Transmission Date: 20220721
  Serious: Yes (Death, Life-Threatening, Hospitalization, Other)
  Sender: FDA-Public Use
  Company Number: AU-MACLEODS PHARMACEUTICALS US LTD-MAC2022035700

PATIENT

DRUGS (2)
  1. VENLAFAXINE [Suspect]
     Active Substance: VENLAFAXINE HYDROCHLORIDE
     Indication: Product used for unknown indication
     Dosage: UNK
     Route: 048
  2. AMITRIPTYLINE [Suspect]
     Active Substance: AMITRIPTYLINE
     Indication: Product used for unknown indication
     Dosage: UNK
     Route: 048

REACTIONS (12)
  - Brain oedema [Fatal]
  - Hypernatraemia [Fatal]
  - Toxicity to various agents [Fatal]
  - Alkalosis [Fatal]
  - Hypokalaemia [Fatal]
  - Seizure [Fatal]
  - Cardiotoxicity [Unknown]
  - Depressed level of consciousness [Unknown]
  - Toxicity to various agents [Unknown]
  - Electrocardiogram QRS complex prolonged [Unknown]
  - Sinus tachycardia [Unknown]
  - Intentional overdose [Unknown]
